FAERS Safety Report 8601000-8 (Version None)
Quarter: 2012Q2

REPORT INFORMATION
  Report Type: 
  Country: None (occurrence: None)
  Receive Date: 20120423
  Receipt Date: 20100216
  Transmission Date: 20120825
  Serious: Yes (Hospitalization, Disabling)
  Sender: FDA-Public Use
  Company Number: PHEH2010US00595

PATIENT
  Age: 81 Year
  Sex: Female

DRUGS (3)
  1. ASPIRIN [Concomitant]
  2. ATENOLOL [Concomitant]
  3. FEMARA [Suspect]
     Indication: BREAST CANCER
     Dosage: 2.5 MG, QD, ORAL
     Route: 048
     Dates: start: 20081118, end: 20100103

REACTIONS (9)
  - BALANCE DISORDER [None]
  - SENSORY LOSS [None]
  - HYPOKINESIA [None]
  - DYSARTHRIA [None]
  - APHASIA [None]
  - ABASIA [None]
  - BASAL GANGLIA INFARCTION [None]
  - DIZZINESS [None]
  - HEMIPARESIS [None]
